FAERS Safety Report 23786743 (Version 1)
Quarter: 2024Q2

REPORT INFORMATION
  Report Type: Spontaneous
  Country: US (occurrence: US)
  Receive Date: 20240426
  Receipt Date: 20240426
  Transmission Date: 20240716
  Serious: Yes (Death, Other)
  Sender: FDA-Public Use
  Company Number: US-BEH-2024171293

PATIENT
  Age: 46 Year
  Sex: Male

DRUGS (3)
  1. HUMAN IMMUNOGLOBULIN G [Suspect]
     Active Substance: HUMAN IMMUNOGLOBULIN G
     Indication: Guillain-Barre syndrome
     Route: 042
  2. MEROPENEM [Concomitant]
     Active Substance: MEROPENEM
     Route: 065
  3. VANCOMYCIN [Concomitant]
     Active Substance: VANCOMYCIN
     Route: 065

REACTIONS (4)
  - Autonomic nervous system imbalance [Fatal]
  - Drug ineffective [Fatal]
  - Acute respiratory distress syndrome [Fatal]
  - Shock [Fatal]
